FAERS Safety Report 19376103 (Version 4)
Quarter: 2021Q3

REPORT INFORMATION
  Report Type: Spontaneous
  Country: IT (occurrence: IT)
  Receive Date: 20210604
  Receipt Date: 20210706
  Transmission Date: 20211014
  Serious: Yes (Death, Other)
  Sender: FDA-Public Use
  Company Number: IT-SA-2021SA185219

PATIENT
  Age: 73 Year
  Sex: Male
  Weight: 80 kg

DRUGS (10)
  1. RAMIPRIL. [Concomitant]
     Active Substance: RAMIPRIL
     Indication: HYPERTENSIVE HEART DISEASE
  2. COMIRNATY [Concomitant]
     Active Substance: TOZINAMERAN
     Indication: COVID-19 IMMUNISATION
     Dosage: 0.3 ML
     Route: 030
     Dates: start: 20210501, end: 20210501
  3. FUROSEMIDE. [Concomitant]
     Active Substance: FUROSEMIDE
     Indication: RENAL FAILURE
  4. ALLOPURINOL. [Concomitant]
     Active Substance: ALLOPURINOL
  5. BISOPROLOL FUMARATE. [Concomitant]
     Active Substance: BISOPROLOL FUMARATE
     Indication: HYPERTENSIVE HEART DISEASE
  6. DUPIXENT [Suspect]
     Active Substance: DUPILUMAB
     Indication: DERMATITIS ATOPIC
     Dosage: 600 MG, QCY
     Route: 058
     Dates: start: 20210514, end: 20210514
  7. LUVION [CANRENONE] [Concomitant]
     Active Substance: CANRENONE
  8. CARDIOASPIRIN [Concomitant]
     Active Substance: ASPIRIN
  9. BISOPROLOL [Concomitant]
     Active Substance: BISOPROLOL
  10. DUPIXENT [Suspect]
     Active Substance: DUPILUMAB

REACTIONS (4)
  - Cardiac failure [Fatal]
  - Drug interaction [Fatal]
  - Systemic inflammatory response syndrome [Fatal]
  - Rhabdomyolysis [Fatal]

NARRATIVE: CASE EVENT DATE: 20210516
